FAERS Safety Report 5908911-2 (Version None)
Quarter: 2008Q4

REPORT INFORMATION
  Report Type: 
  Country: None (occurrence: None)
  Receive Date: 20081006
  Receipt Date: 20080925
  Transmission Date: 20090506
  Serious: Yes (Hospitalization)
  Sender: FDA-Public Use
  Company Number: US-MERCK-0809USA04448

PATIENT
  Age: 56 Year
  Sex: Female
  Weight: 206 kg

DRUGS (8)
  1. VASOTEC [Suspect]
     Indication: HYPERTENSION
     Route: 048
     Dates: start: 20030101, end: 20080719
  2. HYDRODIURIL [Suspect]
     Indication: HYPERTENSION
     Route: 048
     Dates: start: 19930101
  3. BLINDED THERAPY [Suspect]
     Indication: OBESITY
     Route: 065
     Dates: start: 20080625, end: 20080714
  4. FELODIPINE [Suspect]
     Indication: HYPERTENSION
     Route: 048
     Dates: start: 19930101, end: 20080724
  5. ASPIRIN [Concomitant]
     Route: 065
  6. TYLENOL (CAPLET) [Concomitant]
     Route: 065
     Dates: start: 20030101
  7. COD LIVER OIL [Concomitant]
     Route: 048
     Dates: start: 20080428
  8. GERITOL COMPLETE [Concomitant]
     Route: 048
     Dates: start: 20080429

REACTIONS (1)
  - DYSPNOEA [None]
